FAERS Safety Report 15556933 (Version 1)
Quarter: 2018Q4

REPORT INFORMATION
  Report Type: Spontaneous
  Country: JP (occurrence: JP)
  Receive Date: 20181026
  Receipt Date: 20181026
  Transmission Date: 20190205
  Serious: Yes (Hospitalization)
  Sender: FDA-Public Use
  Company Number: JP-ASTRAZENECA-2018SF32340

PATIENT
  Age: 75 Year
  Sex: Female

DRUGS (2)
  1. TAGRISSO [Suspect]
     Active Substance: OSIMERTINIB
     Indication: NON-SMALL CELL LUNG CANCER
     Route: 048
     Dates: start: 20180821, end: 20181006
  2. TAGRISSO [Suspect]
     Active Substance: OSIMERTINIB
     Indication: NON-SMALL CELL LUNG CANCER
     Route: 048
     Dates: start: 20181016

REACTIONS (6)
  - Pyrexia [Recovering/Resolving]
  - Rash [Recovering/Resolving]
  - Conjunctival hyperaemia [Recovering/Resolving]
  - Stomatitis [Recovering/Resolving]
  - Lenticular opacities [Recovering/Resolving]
  - Scleral hyperaemia [Recovering/Resolving]

NARRATIVE: CASE EVENT DATE: 20181005
